FAERS Safety Report 5569387-0 (Version None)
Quarter: 2007Q4

REPORT INFORMATION
  Report Type: 
  Country: None (occurrence: None)
  Receive Date: 20071220
  Receipt Date: 20070510
  Transmission Date: 20080405
  Serious: Yes (Hospitalization, Other)
  Sender: FDA-Public Use
  Company Number: US-ASTRAZENECA-2006UW17483

PATIENT
  Age: 17753 Day
  Sex: Female
  Weight: 62.3 kg

DRUGS (4)
  1. SEROQUEL [Suspect]
     Indication: BIPOLAR DISORDER
     Dosage: 25 MG TO 300 MG BID
     Route: 048
     Dates: start: 20020320, end: 20041019
  2. SEROQUEL [Suspect]
     Route: 048
     Dates: start: 20041217, end: 20051203
  3. SEROQUEL [Suspect]
     Route: 048
     Dates: start: 20051229, end: 20060505
  4. HALDOL [Concomitant]
     Dates: start: 20030209, end: 20040831

REACTIONS (7)
  - ANGIOPATHY [None]
  - DIABETES MELLITUS [None]
  - DIABETIC COMA [None]
  - DIABETIC KETOACIDOSIS [None]
  - PANCREATITIS [None]
  - RENAL FAILURE [None]
  - RENAL TRANSPLANT [None]
